FAERS Safety Report 20405809 (Version 1)
Quarter: 2022Q1

REPORT INFORMATION
  Report Type: Spontaneous
  Country: US (occurrence: None)
  Receive Date: 20220114
  Receipt Date: 20220114
  Transmission Date: 20220423
  Serious: No
  Sender: FDA-Public Use
  Company Number: None

PATIENT
  Age: 69 Year
  Sex: Female
  Weight: 62.1 kg

DRUGS (1)
  1. IODINE [Suspect]
     Active Substance: IODINE
     Indication: X-ray with contrast
     Route: 048
     Dates: start: 20220111, end: 20220111

REACTIONS (3)
  - Diarrhoea [None]
  - Product communication issue [None]
  - Product communication issue [None]

NARRATIVE: CASE EVENT DATE: 20220111
